FAERS Safety Report 9425293 (Version 1)
Quarter: 2013Q3

REPORT INFORMATION
  Report Type: Spontaneous
  Country: US (occurrence: US)
  Receive Date: 20130729
  Receipt Date: 20130729
  Transmission Date: 20140515
  Serious: No
  Sender: FDA-Public Use
  Company Number: US-VERTEX PHARMACEUTICALS INC-2013-008296

PATIENT
  Age: 59 Year
  Sex: Female

DRUGS (16)
  1. INCIVEK [Suspect]
     Indication: HEPATITIS C
     Dosage: 750 MG, TID
     Route: 048
     Dates: start: 2013, end: 20130705
  2. PEGASYS [Suspect]
     Indication: HEPATITIS C
     Dosage: 180 ?G, QW
     Route: 058
     Dates: start: 2013, end: 20130705
  3. RIBAVIRIN [Suspect]
     Indication: HEPATITIS C
     Dosage: 400 MG, BID
     Route: 048
     Dates: start: 2013, end: 20130703
  4. LISINOPRIL [Concomitant]
  5. FLEXERIL [Concomitant]
  6. VOLTAREN [Concomitant]
  7. NASONEX [Concomitant]
  8. SINGULAIR [Concomitant]
  9. ASTELIN  NASAL SPRAY [Concomitant]
  10. AFRIN NASAL SPRAY [Concomitant]
  11. ZYRTEC [Concomitant]
  12. VITAMINS [Concomitant]
  13. CALCIUM [Concomitant]
  14. FISH OIL [Concomitant]
  15. MILK THISTLE EXTRACT [Concomitant]
  16. GLUCOSAMINE/CHONDROITIN [Concomitant]

REACTIONS (6)
  - Fluid retention [Unknown]
  - Dyspnoea [Unknown]
  - Pyrexia [Unknown]
  - Fatigue [Unknown]
  - Rash vesicular [Unknown]
  - Anaemia [Unknown]
